FAERS Safety Report 9167649 (Version 1)
Quarter: 2013Q1

REPORT INFORMATION
  Report Type: Spontaneous
  Country: BE (occurrence: None)
  Receive Date: 20130314
  Receipt Date: 20130314
  Transmission Date: 20140127
  Serious: Yes (Death, Hospitalization)
  Sender: FDA-Public Use
  Company Number: NSR_01060_2013

PATIENT
  Age: 38 Year
  Sex: Female

DRUGS (3)
  1. VENLAFAXINE (VENLAFAXINE) [Suspect]
     Indication: PRODUCT USED FOR UNKNOWN INDICATION
     Route: 048
  2. BENZODIAZEPINE [Suspect]
     Indication: PRODUCT USED FOR UNKNOWN INDICATION
     Dosage: (DF) [NOT THE PRESCRIBED AMOUNT]
  3. ETHANOL (ETHANOL) (UNKNOWN) (ETHANOL) [Suspect]
     Indication: PRODUCT USED FOR UNKNOWN INDICATION

REACTIONS (21)
  - Coma scale abnormal [None]
  - Heart rate increased [None]
  - Hypotension [None]
  - Clonus [None]
  - Renal failure acute [None]
  - Continuous haemodiafiltration [None]
  - Rhabdomyolysis [None]
  - Liver injury [None]
  - Hepatic ischaemia [None]
  - Hepatocellular injury [None]
  - Coagulation test abnormal [None]
  - Left ventricular dysfunction [None]
  - Serotonin syndrome [None]
  - Atrial fibrillation [None]
  - Ventricular tachycardia [None]
  - Streptococcal sepsis [None]
  - Pneumonia [None]
  - Acute respiratory distress syndrome [None]
  - Hypoxia [None]
  - Overdose [None]
  - Cardiac failure acute [None]
